FAERS Safety Report 8116688-8 (Version None)
Quarter: 2012Q1

REPORT INFORMATION
  Report Type: 
  Country: None (occurrence: None)
  Receive Date: 20120206
  Receipt Date: 20120127
  Transmission Date: 20120608
  Serious: Yes (Hospitalization)
  Sender: FDA-Public Use
  Company Number: PHHY2012CO007935

PATIENT
  Sex: Female

DRUGS (3)
  1. HYDROXYUREA [Concomitant]
     Indication: SICKLE CELL ANAEMIA
     Dosage: 1 G, UNK
  2. EXJADE [Suspect]
     Indication: IRON OVERLOAD
     Route: 048
  3. FOLIC ACID [Concomitant]
     Indication: SICKLE CELL ANAEMIA
     Dosage: 2 MG, UNK
     Dates: start: 19720101

REACTIONS (1)
  - PNEUMONIA [None]
